FAERS Safety Report 4314243-9 (Version None)
Quarter: 2004Q1

REPORT INFORMATION
  Report Type: 
  Country: None (occurrence: None)
  Receive Date: 20040309
  Receipt Date: 20040309
  Transmission Date: 20041129
  Serious: Yes (Hospitalization)
  Sender: FDA-Public Use
  Company Number: None

PATIENT
  Age: 64 Year
  Sex: Male

DRUGS (6)
  1. CAPECITABINE [Suspect]
     Indication: RENAL CANCER METASTATIC
     Dosage: D1-14/21 D ORAL
     Route: 048
     Dates: start: 20031126, end: 20040211
  2. OXALIPLATIN [Suspect]
     Indication: RECTAL CANCER METASTATIC
     Dosage: D1,8/21D C INTRAVENOUS
     Route: 042
     Dates: start: 20031126, end: 20040217
  3. KYTRIL [Concomitant]
  4. COMPAZINE [Concomitant]
  5. DEXAMETHASONE [Concomitant]
  6. IMODIUM [Concomitant]

REACTIONS (1)
  - GASTROINTESTINAL HAEMORRHAGE [None]
